FAERS Safety Report 17143751 (Version 2)
Quarter: 2019Q4

REPORT INFORMATION
  Report Type: Spontaneous
  Country: PT (occurrence: PT)
  Receive Date: 20191212
  Receipt Date: 20191227
  Transmission Date: 20200122
  Serious: Yes (Hospitalization, Other)
  Sender: FDA-Public Use
  Company Number: PT-JNJFOC-20191213915

PATIENT
  Age: 72 Year
  Sex: Female

DRUGS (16)
  1. CLOBAZAM. [Concomitant]
     Active Substance: CLOBAZAM
  2. CLARITROMICINA [Suspect]
     Active Substance: CLARITHROMYCIN
     Indication: RESPIRATORY TRACT INFECTION
     Dosage: BID FOR 7 DAYS
     Route: 065
     Dates: start: 20191129
  3. ROSUVASTATINA [ROSUVASTATIN] [Concomitant]
     Active Substance: ROSUVASTATIN
  4. RIVAROXABAN [Suspect]
     Active Substance: RIVAROXABAN
     Indication: ATRIAL FIBRILLATION
     Dosage: 15 MG, QD
     Route: 048
  5. PANTOPRAZOL [PANTOPRAZOLE] [Concomitant]
     Active Substance: PANTOPRAZOLE
  6. ESLICARBAZEPINA [Concomitant]
     Active Substance: ESLICARBAZEPINE
  7. RIVAROXABAN [Suspect]
     Active Substance: RIVAROXABAN
     Route: 048
  8. TRIFLUSAL [Concomitant]
     Active Substance: TRIFLUSAL
  9. STAGID [Concomitant]
     Active Substance: METFORMIN PAMOATE
     Dosage: UNK
  10. ZANIPRESS [Concomitant]
     Active Substance: ENALAPRIL MALEATE\LERCANIDIPINE HYDROCHLORIDE
     Dosage: 20/20MG
  11. EZETIMIBE. [Concomitant]
     Active Substance: EZETIMIBE
  12. JANUVIA [Concomitant]
     Active Substance: SITAGLIPTIN PHOSPHATE
  13. BISOPROLOL [Concomitant]
     Active Substance: BISOPROLOL
  14. MIRTAZAPINA [Concomitant]
     Active Substance: MIRTAZAPINE
  15. FOLICIL [Concomitant]
     Active Substance: FOLIC ACID
  16. TROSPIUM CHLORIDE. [Concomitant]
     Active Substance: TROSPIUM CHLORIDE

REACTIONS (3)
  - Pulmonary haematoma [Recovering/Resolving]
  - Respiratory tract infection [Recovering/Resolving]
  - Labelled drug-drug interaction medication error [Unknown]

NARRATIVE: CASE EVENT DATE: 20191129
